FAERS Safety Report 9466584 (Version 1)
Quarter: 2013Q3

REPORT INFORMATION
  Report Type: Report from Study
  Country: US (occurrence: US)
  Receive Date: 20130820
  Receipt Date: 20130820
  Transmission Date: 20140515
  Serious: Yes (Other)
  Sender: FDA-Public Use
  Company Number: US-ABBOTT-13P-163-1134589-00

PATIENT
  Sex: Female
  Weight: 66.28 kg

DRUGS (2)
  1. HUMIRA [Suspect]
     Indication: RHEUMATOID ARTHRITIS
     Dosage: SKIPPED ONE DOSE
     Dates: start: 2005, end: 20130811
  2. PREDNISONE [Concomitant]
     Indication: MENIERE^S DISEASE
     Dosage: OFF AND ON. TAPERING OFF NOW

REACTIONS (1)
  - Meniere^s disease [Unknown]
